FAERS Safety Report 8174504-2 (Version None)
Quarter: 2012Q1

REPORT INFORMATION
  Report Type: 
  Country: None (occurrence: None)
  Receive Date: 20120229
  Receipt Date: 20120221
  Transmission Date: 20120608
  Serious: Yes (Hospitalization, Other)
  Sender: FDA-Public Use
  Company Number: US-ABBOTT-11P-163-0727283-00

PATIENT
  Sex: Female
  Weight: 54.026 kg

DRUGS (11)
  1. FOLIC ACID [Concomitant]
     Indication: PRODUCT USED FOR UNKNOWN INDICATION
  2. MULTI-VITAMINS [Concomitant]
     Indication: PRODUCT USED FOR UNKNOWN INDICATION
  3. HYDROCHLOROTHIAZIDE [Concomitant]
     Indication: PRODUCT USED FOR UNKNOWN INDICATION
  4. CALCIUM WITH VITAMIN D [Concomitant]
     Indication: PRODUCT USED FOR UNKNOWN INDICATION
  5. VOLTAREN [Concomitant]
     Indication: PRODUCT USED FOR UNKNOWN INDICATION
     Route: 061
  6. HUMIRA [Suspect]
     Indication: RHEUMATOID ARTHRITIS
     Route: 058
     Dates: start: 20100419, end: 20110401
  7. METHOTREXATE [Concomitant]
     Indication: PRODUCT USED FOR UNKNOWN INDICATION
     Route: 058
  8. VITAMIN D [Concomitant]
     Indication: PRODUCT USED FOR UNKNOWN INDICATION
  9. CELEBREX [Concomitant]
     Indication: PRODUCT USED FOR UNKNOWN INDICATION
  10. RECLAST [Concomitant]
     Indication: OSTEOPOROSIS
     Route: 042
     Dates: start: 20100301
  11. GLUCOSAMINE/CHONDROITIN [Concomitant]
     Indication: PRODUCT USED FOR UNKNOWN INDICATION

REACTIONS (26)
  - RESPIRATORY DISTRESS [None]
  - VASCULITIS [None]
  - RENAL FAILURE [None]
  - RESPIRATORY FAILURE [None]
  - NEOPLASM MALIGNANT [None]
  - MALAISE [None]
  - SMALL INTESTINAL OBSTRUCTION [None]
  - INFECTIOUS PERITONITIS [None]
  - ABDOMINAL PAIN [None]
  - BRONCHOPULMONARY ASPERGILLOSIS [None]
  - URINARY TRACT INFECTION [None]
  - ANAEMIA [None]
  - ABASIA [None]
  - SINUSITIS [None]
  - RENAL FAILURE ACUTE [None]
  - ANTINEUTROPHIL CYTOPLASMIC ANTIBODY POSITIVE [None]
  - LUNG NEOPLASM [None]
  - IMMUNODEFICIENCY [None]
  - ACUTE PRERENAL FAILURE [None]
  - MALNUTRITION [None]
  - INTESTINAL PERFORATION [None]
  - SOMNOLENCE [None]
  - METAPLASIA [None]
  - GENERALISED OEDEMA [None]
  - SEPSIS [None]
  - METABOLIC ACIDOSIS [None]
